FAERS Safety Report 22037820 (Version 2)
Quarter: 2023Q1

REPORT INFORMATION
  Report Type: Report from Study
  Country: US (occurrence: US)
  Receive Date: 20230227
  Receipt Date: 20230302
  Transmission Date: 20230418
  Serious: No
  Sender: FDA-Public Use
  Company Number: US-AMGEN-USASP2023034490

PATIENT
  Age: 48 Year
  Sex: Male

DRUGS (1)
  1. ENBREL [Suspect]
     Active Substance: ETANERCEPT
     Indication: Product used for unknown indication
     Dosage: UNK
     Route: 058
     Dates: start: 202210, end: 202302

REACTIONS (5)
  - Erythema [Not Recovered/Not Resolved]
  - Rash macular [Unknown]
  - Limb discomfort [Unknown]
  - Adverse event [Unknown]
  - Tremor [Unknown]
